FAERS Safety Report 5370771-9 (Version None)
Quarter: 2007Q2

REPORT INFORMATION
  Report Type: 
  Country: None (occurrence: None)
  Receive Date: 20070626
  Receipt Date: 20070626
  Transmission Date: 20071010
  Serious: Yes (Other)
  Sender: FDA-Public Use
  Company Number: A0660007A

PATIENT
  Age: 32 Year
  Sex: Female

DRUGS (5)
  1. LAMOTRIGINE [Suspect]
     Indication: BIPOLAR DISORDER
     Dates: start: 20050701, end: 20070503
  2. ORTHO-NOVUM 7/7/7-21 [Suspect]
  3. PROZAC [Concomitant]
  4. SEROQUEL [Concomitant]
  5. MUSCLE RELAXANT (UNSPECIFIED) [Concomitant]

REACTIONS (2)
  - NORMAL DELIVERY [None]
  - PREGNANCY ON ORAL CONTRACEPTIVE [None]
